FAERS Safety Report 9121004 (Version 1)
Quarter: 2013Q1

REPORT INFORMATION
  Report Type: Report from Study
  Country: DK (occurrence: DK)
  Receive Date: 20130226
  Receipt Date: 20130226
  Transmission Date: 20140127
  Serious: Yes (Death)
  Sender: FDA-Public Use
  Company Number: DK-BRISTOL-MYERS SQUIBB COMPANY-15910862

PATIENT
  Age: 74 Year
  Sex: Male

DRUGS (8)
  1. IPILIMUMAB [Suspect]
     Indication: PROSTATE CANCER
     Dosage: 1 DF: 820 UNIT NOS
     Route: 042
     Dates: start: 20110328, end: 20110328
  2. ELTROXIN [Concomitant]
     Dosage: DOSAGE:4TABS 4XWEEK?2TABS 3XWEEK
  3. POTASSIUM [Concomitant]
  4. LANSOPRAZOLE [Concomitant]
  5. NORITREN [Concomitant]
  6. PREDNISOLONE [Concomitant]
  7. EMPERAL [Concomitant]
  8. FURIX [Concomitant]

REACTIONS (1)
  - Pneumonia [Fatal]
